FAERS Safety Report 22068237 (Version 5)
Quarter: 2023Q2

REPORT INFORMATION
  Report Type: Spontaneous
  Country: US (occurrence: US)
  Receive Date: 20230307
  Receipt Date: 20230413
  Transmission Date: 20230721
  Serious: No
  Sender: FDA-Public Use
  Company Number: US-UNITED THERAPEUTICS-UNT-2023-005132

PATIENT
  Age: 37 Year
  Sex: Female
  Weight: 75.737 kg

DRUGS (5)
  1. REMODULIN [Suspect]
     Active Substance: TREPROSTINIL
     Indication: Pulmonary arterial hypertension
     Dosage: 0.0125 ?G/KG, (SELF-FILLED CASSETTE WITH 2.2 ML, RATE OF 24 MCL PER HOUR) CONTINUING
     Route: 058
     Dates: start: 20230210
  2. REMODULIN [Suspect]
     Active Substance: TREPROSTINIL
     Dosage: 0.009 ?G/KG, (SELF-FILLED CASSETTE WITH 1.7 ML, RATE OF 17 MCL PER HOUR), CONTINUING
     Route: 058
  3. REMODULIN [Suspect]
     Active Substance: TREPROSTINIL
     Dosage: 0.011 ?G/KG (SELF-FILLED CASSETTE WITH 2.1 ML AT PUMP RATE OF 22 MCL/HOUR), CONTINUING
     Route: 058
  4. LECITHIN\POLOXAMER 407 [Suspect]
     Active Substance: LECITHIN\POLOXAMER 407
     Indication: Infusion site pain
     Dosage: UNK
     Route: 065
  5. ADEMPAS [Concomitant]
     Active Substance: RIOCIGUAT
     Indication: Product used for unknown indication
     Dosage: UNK
     Route: 065

REACTIONS (12)
  - Infusion site pain [Unknown]
  - Device wireless communication issue [Recovered/Resolved]
  - Infusion site swelling [Unknown]
  - Infusion site erythema [Unknown]
  - Nausea [Unknown]
  - Vomiting [Unknown]
  - Infusion site urticaria [Unknown]
  - Diarrhoea [Unknown]
  - Infusion site infection [Unknown]
  - Infusion site paraesthesia [Unknown]
  - Expired product administered [Unknown]
  - Infusion site nodule [Unknown]

NARRATIVE: CASE EVENT DATE: 20230201
